FAERS Safety Report 16134200 (Version 1)
Quarter: 2019Q1

REPORT INFORMATION
  Report Type: Spontaneous
  Country: US (occurrence: US)
  Receive Date: 20190329
  Receipt Date: 20190329
  Transmission Date: 20190418
  Serious: Yes (Other)
  Sender: FDA-Public Use
  Company Number: US-BAYER-2019-056400

PATIENT
  Sex: Female

DRUGS (1)
  1. KYLEENA [Suspect]
     Active Substance: LEVONORGESTREL
     Dosage: 17.5 MCG/24HR, CONT
     Route: 015
     Dates: start: 201802

REACTIONS (13)
  - Pregnancy with contraceptive device [Not Recovered/Not Resolved]
  - Constipation [None]
  - Fatigue [None]
  - Streptococcal infection [None]
  - Abdominal pain [None]
  - Nausea [None]
  - Pain [None]
  - Influenza [None]
  - Abdominal distension [None]
  - Vomiting [None]
  - Drug ineffective [None]
  - Pyrexia [None]
  - Infectious mononucleosis [None]

NARRATIVE: CASE EVENT DATE: 201903
